FAERS Safety Report 6622715-7 (Version None)
Quarter: 2010Q1

REPORT INFORMATION
  Report Type: 
  Country: None (occurrence: None)
  Receive Date: 20100310
  Receipt Date: 20100121
  Transmission Date: 20100710
  Serious: No
  Sender: FDA-Public Use
  Company Number: US-BIOGENIDEC-2010BI002246

PATIENT
  Age: 51 Year
  Sex: Male

DRUGS (2)
  1. AVONEX [Suspect]
     Indication: MULTIPLE SCLEROSIS
     Route: 030
     Dates: start: 20091018
  2. ADVIL LIQUI-GELS [Concomitant]
     Indication: PREMEDICATION
     Route: 048
     Dates: start: 20091018

REACTIONS (11)
  - ASTHENIA [None]
  - COORDINATION ABNORMAL [None]
  - DECREASED APPETITE [None]
  - HEADACHE [None]
  - INFLUENZA LIKE ILLNESS [None]
  - MOBILITY DECREASED [None]
  - MUSCLE SPASTICITY [None]
  - PHOTOSENSITIVITY REACTION [None]
  - TEMPERATURE INTOLERANCE [None]
  - VOMITING [None]
  - WEIGHT DECREASED [None]
